FAERS Safety Report 22114163 (Version 1)
Quarter: 2023Q1

REPORT INFORMATION
  Report Type: Spontaneous
  Country: US (occurrence: US)
  Receive Date: 20230320
  Receipt Date: 20230320
  Transmission Date: 20230418
  Serious: No
  Sender: FDA-Public Use
  Company Number: US-Ipsen Biopharmaceuticals, Inc.-2023-06647

PATIENT

DRUGS (2)
  1. DYSPORT [Suspect]
     Active Substance: ABOBOTULINUMTOXINA
     Indication: Skin cosmetic procedure
     Dosage: 50 UNITS GALBELLA, 10 UNITS FRONTALIS
     Route: 065
     Dates: start: 20230308, end: 20230308
  2. DYSPORT [Suspect]
     Active Substance: ABOBOTULINUMTOXINA
     Dosage: 50 UNITS GALBELLA, 20 UNITS FRONTALIS 12 UNITS TO CROW
     Route: 065
     Dates: start: 20230309, end: 20230309

REACTIONS (2)
  - Swelling [Unknown]
  - Off label use [Unknown]

NARRATIVE: CASE EVENT DATE: 20230308
